FAERS Safety Report 4319345-9 (Version None)
Quarter: 2004Q1

REPORT INFORMATION
  Report Type: 
  Country: None (occurrence: None)
  Receive Date: 20040319
  Receipt Date: 20040312
  Transmission Date: 20041129
  Serious: Yes (Hospitalization)
  Sender: FDA-Public Use
  Company Number: PHRM2004FR01169

PATIENT
  Age: 27 Year
  Sex: Female

DRUGS (3)
  1. TEGRETOL [Suspect]
     Dosage: 400 MG, QD
     Route: 048
     Dates: start: 20040119, end: 20040214
  2. PROZAC [Concomitant]
     Route: 048
  3. XANAX [Concomitant]
     Route: 048

REACTIONS (7)
  - AGRANULOCYTOSIS [None]
  - EOSINOPHILIA [None]
  - MICROCYTIC ANAEMIA [None]
  - PRURITUS GENERALISED [None]
  - RASH ERYTHEMATOUS [None]
  - STOMATITIS [None]
  - TOXIC SKIN ERUPTION [None]
